FAERS Safety Report 8273937-3 (Version None)
Quarter: 2012Q2

REPORT INFORMATION
  Report Type: 
  Country: None (occurrence: None)
  Receive Date: 20120411
  Receipt Date: 20120330
  Transmission Date: 20120825
  Serious: Yes (Hospitalization)
  Sender: FDA-Public Use
  Company Number: US-ELI_LILLY_AND_COMPANY-US201105001331

PATIENT
  Sex: Female
  Weight: 64.853 kg

DRUGS (12)
  1. FORTEO [Suspect]
     Dosage: 20 UG, QD
     Route: 065
  2. PRADAXA [Concomitant]
     Dosage: 110 DF, BID
  3. DILTIAZEM HCL [Concomitant]
     Dosage: 360 MG, QD
  4. FORTEO [Suspect]
     Indication: OSTEOPOROSIS
     Dosage: 20 UG, QD
     Route: 065
     Dates: start: 20100901, end: 20110404
  5. FORTEO [Suspect]
     Dosage: 20 UG, QD
     Route: 065
  6. FORTEO [Suspect]
     Dosage: 20 UG, QD
     Route: 065
     Dates: start: 20110418
  7. LOSARTAN POTASSIUM AND HYDROCHLOROTHIAZIDE [Concomitant]
     Dosage: 62.5 MG, UNK
  8. LEXAPRO [Concomitant]
     Indication: ANXIETY
  9. FORTEO [Suspect]
     Dosage: 20 UG, QD
     Route: 065
  10. METPROLOL [Concomitant]
     Dosage: 100 DF, BID
  11. FORTEO [Suspect]
     Dosage: 20 UG, QD
     Route: 065
  12. FORTEO [Suspect]
     Dosage: 20 UG, QD
     Route: 065

REACTIONS (12)
  - GAIT DISTURBANCE [None]
  - BRONCHITIS [None]
  - TINNITUS [None]
  - INJURY [None]
  - ROAD TRAFFIC ACCIDENT [None]
  - ARTHROPATHY [None]
  - BONE DISORDER [None]
  - OEDEMA PERIPHERAL [None]
  - PAIN IN EXTREMITY [None]
  - CARDIAC DISORDER [None]
  - BACK DISORDER [None]
  - ATRIAL FIBRILLATION [None]
